FAERS Safety Report 8884604 (Version 1)
Quarter: 2012Q4

REPORT INFORMATION
  Report Type: 
  Country: US (occurrence: US)
  Receive Date: 20121104
  Receipt Date: 20121104
  Transmission Date: 20130627
  Serious: No
  Sender: FDA-Public Use
  Company Number: US-009507513-1210USA012879

PATIENT
  Age: 59 Year
  Sex: Female

DRUGS (5)
  1. FOSAMAX [Suspect]
     Route: 048
  2. ACTONEL [Suspect]
  3. BONIVA [Suspect]
  4. VITAMIN D (UNSPECIFIED) [Suspect]
  5. CALCIUM (UNSPECIFIED) [Suspect]

REACTIONS (1)
  - Drug ineffective [Unknown]
